FAERS Safety Report 17035661 (Version 1)
Quarter: 2019Q4

REPORT INFORMATION
  Report Type: Spontaneous
  Country: US (occurrence: US)
  Receive Date: 20191114
  Receipt Date: 20191114
  Transmission Date: 20200122
  Serious: Yes (Life-Threatening, Hospitalization)
  Sender: FDA-Public Use
  Company Number: None

PATIENT
  Age: 57 Year
  Sex: Male
  Weight: 85.5 kg

DRUGS (1)
  1. CHLORASEPTIC WARMING SORE THROAT (PHENOL) [Suspect]
     Active Substance: PHENOL
     Indication: OROPHARYNGEAL PAIN
     Route: 048
     Dates: start: 20191109, end: 20191109

REACTIONS (5)
  - Throat tightness [None]
  - Obstructive airways disorder [None]
  - Dysphonia [None]
  - Infection [None]
  - Adverse reaction [None]

NARRATIVE: CASE EVENT DATE: 20191109
